FAERS Safety Report 4811483-7 (Version None)
Quarter: 2005Q4

REPORT INFORMATION
  Report Type: 
  Country: None (occurrence: None)
  Receive Date: 20051027
  Receipt Date: 20051013
  Transmission Date: 20060501
  Serious: Yes (Other)
  Sender: FDA-Public Use
  Company Number: DE-GILEAD-2005-0008807

PATIENT
  Sex: Female

DRUGS (1)
  1. HEPSERA [Suspect]

REACTIONS (1)
  - LACTIC ACIDOSIS [None]
